FAERS Safety Report 9147476 (Version 1)
Quarter: 2013Q1

REPORT INFORMATION
  Report Type: Spontaneous
  Country: US (occurrence: US)
  Receive Date: 20130307
  Receipt Date: 20130307
  Transmission Date: 20140127
  Serious: No
  Sender: FDA-Public Use
  Company Number: US-B.I. PHARMACEUTICALS,INC./RIDGEFIELD-2013-BI-05770BP

PATIENT
  Sex: Female
  Weight: 95 kg

DRUGS (3)
  1. SPIRIVA [Suspect]
     Indication: CHRONIC OBSTRUCTIVE PULMONARY DISEASE
     Dosage: 18 MCG
     Route: 055
     Dates: start: 2008
  2. PREDNISONE [Concomitant]
     Indication: BRONCHITIS
     Dosage: 10 MG
     Route: 048
     Dates: start: 20130207
  3. OXYGEN [Concomitant]

REACTIONS (2)
  - Cataract [Not Recovered/Not Resolved]
  - Product quality issue [Recovered/Resolved]
